FAERS Safety Report 7133533-8 (Version None)
Quarter: 2010Q4

REPORT INFORMATION
  Report Type: 
  Country: None (occurrence: None)
  Receive Date: 20101202
  Receipt Date: 20101129
  Transmission Date: 20110411
  Serious: Yes (Other)
  Sender: FDA-Public Use
  Company Number: US-PFIZER INC-2010159562

PATIENT

DRUGS (1)
  1. GEODON [Suspect]

REACTIONS (2)
  - BURNING MOUTH SYNDROME [None]
  - POLYNEUROPATHY [None]
